FAERS Safety Report 18109256 (Version 2)
Quarter: 2020Q3

REPORT INFORMATION
  Report Type: Spontaneous
  Country: US (occurrence: US)
  Receive Date: 20200804
  Receipt Date: 20200807
  Transmission Date: 20201103
  Serious: Yes (Life-Threatening, Hospitalization, Other)
  Sender: FDA-Public Use
  Company Number: US-ADVANZ PHARMA-202007007450

PATIENT

DRUGS (10)
  1. HYDROXYCHLOROQUINE [Suspect]
     Active Substance: HYDROXYCHLOROQUINE
     Indication: COVID-19
     Dosage: 200 MG, BID
     Route: 065
     Dates: start: 2020, end: 2020
  2. PREDNISONE. [Suspect]
     Active Substance: PREDNISONE
     Dosage: 5 MG, QD
     Route: 065
  3. MYCOPHENOLIC ACID. [Suspect]
     Active Substance: MYCOPHENOLIC ACID
     Dosage: 100 MG, QD
     Route: 065
     Dates: start: 2020, end: 2020
  4. TACROLIMUS. [Suspect]
     Active Substance: TACROLIMUS
     Indication: IMMUNOSUPPRESSION
     Dosage: UNK
     Route: 065
     Dates: start: 202001
  5. PREDNISONE. [Suspect]
     Active Substance: PREDNISONE
     Indication: IMMUNOSUPPRESSION
     Dosage: UNK
     Route: 065
     Dates: start: 202001
  6. ADRIAMYCIN HYDROCHLORIDE [Concomitant]
  7. HYDROXYCHLOROQUINE [Suspect]
     Active Substance: HYDROXYCHLOROQUINE
     Indication: PRODUCT USE IN UNAPPROVED INDICATION
  8. MYCOPHENOLIC ACID. [Suspect]
     Active Substance: MYCOPHENOLIC ACID
     Dosage: 500 MG, QD
     Route: 065
     Dates: start: 2020, end: 2020
  9. AZITHROMYCIN 250 MG [Suspect]
     Active Substance: AZITHROMYCIN ANHYDROUS
     Indication: COVID-19
     Dosage: 250 MG, QD
     Route: 065
     Dates: start: 2020, end: 2020
  10. MYCOPHENOLIC ACID. [Suspect]
     Active Substance: MYCOPHENOLIC ACID
     Indication: IMMUNOSUPPRESSION
     Dosage: 200 MG, QD
     Route: 065
     Dates: start: 202001, end: 2020

REACTIONS (24)
  - Respiratory distress [Unknown]
  - Hyperkalaemia [Unknown]
  - Respiratory failure [Unknown]
  - Pyrexia [Unknown]
  - Pneumonia [Unknown]
  - Pneumonia klebsiella [Unknown]
  - Fluid overload [Unknown]
  - Cough [Unknown]
  - Corynebacterium infection [Unknown]
  - Off label use [Unknown]
  - Pleural effusion [Unknown]
  - Staphylococcal bacteraemia [Unknown]
  - Polyomavirus viraemia [Unknown]
  - COVID-19 [Recovered/Resolved]
  - Urinoma [Unknown]
  - Renal tubular necrosis [Unknown]
  - Abdominal pain lower [Unknown]
  - Stenotrophomonas infection [Unknown]
  - Pulmonary oedema [Unknown]
  - Morganella infection [Unknown]
  - Leukocytosis [Unknown]
  - Enterococcal infection [Unknown]
  - Wound infection bacterial [Unknown]
  - Staphylococcal infection [Unknown]

NARRATIVE: CASE EVENT DATE: 2020
